FAERS Safety Report 6366858-4 (Version None)
Quarter: 2009Q3

REPORT INFORMATION
  Report Type: 
  Country: None (occurrence: None)
  Receive Date: 20090921
  Receipt Date: 20090914
  Transmission Date: 20100115
  Serious: Yes (Hospitalization)
  Sender: FDA-Public Use
  Company Number: FR-AVENTIS-200913424FR

PATIENT
  Age: 89 Year
  Sex: Female

DRUGS (3)
  1. LASILIX                            /00032601/ [Suspect]
     Route: 048
     Dates: start: 20070101, end: 20090613
  2. DILTIAZEM [Suspect]
     Route: 048
     Dates: start: 20070101, end: 20090613
  3. ATACAND [Suspect]
     Route: 048
     Dates: start: 20070101, end: 20090613

REACTIONS (2)
  - ATRIOVENTRICULAR BLOCK FIRST DEGREE [None]
  - MALAISE [None]
